FAERS Safety Report 24668646 (Version 2)
Quarter: 2024Q4

REPORT INFORMATION
  Report Type: Report from Study
  Country: US (occurrence: US)
  Receive Date: 20241127
  Receipt Date: 20241226
  Transmission Date: 20250114
  Serious: Yes (Other)
  Sender: ABBVIE
  Company Number: US-ABBVIE-6014856

PATIENT
  Age: 88 Year
  Sex: Female
  Weight: 72.57 kg

DRUGS (1)
  1. LINZESS [Suspect]
     Active Substance: LINACLOTIDE
     Indication: Constipation
     Route: 048
     Dates: start: 202403, end: 202405

REACTIONS (4)
  - Cholelithiasis [Recovered/Resolved]
  - Procedural haemorrhage [Recovered/Resolved]
  - Vomiting [Recovered/Resolved]
  - Hepatobiliary procedural complication [Recovered/Resolved]

NARRATIVE: CASE EVENT DATE: 20240501
